FAERS Safety Report 5733201-0 (Version None)
Quarter: 2008Q2

REPORT INFORMATION
  Report Type: 
  Country: None (occurrence: None)
  Receive Date: 20080509
  Receipt Date: 20080428
  Transmission Date: 20081010
  Serious: Yes (Hospitalization)
  Sender: FDA-Public Use
  Company Number: US-ELI_LILLY_AND_COMPANY-US200804007428

PATIENT
  Sex: Female
  Weight: 70.748 kg

DRUGS (16)
  1. FORTEO [Suspect]
     Indication: SPINAL FRACTURE
     Route: 058
     Dates: start: 20080131, end: 20080215
  2. COUMADIN [Concomitant]
  3. DETROL /USA/ [Concomitant]
  4. TRAZODONE HCL [Concomitant]
  5. NAPROXEN [Concomitant]
  6. DIGOXIN [Concomitant]
  7. DILTIAZEM [Concomitant]
  8. OMEPRAZOLE [Concomitant]
  9. GLYBURIDE [Concomitant]
  10. LASIX [Concomitant]
  11. POTASSIUM CHLORIDE [Concomitant]
  12. PULMICORT [Concomitant]
  13. GABAPENTIN [Concomitant]
  14. PREDNISONE TAB [Concomitant]
  15. CALCIUM [Concomitant]
  16. VITAMIN D [Concomitant]

REACTIONS (2)
  - PNEUMONIA [None]
  - URINARY TRACT INFECTION [None]
